FAERS Safety Report 8367516-7 (Version None)
Quarter: 2012Q2

REPORT INFORMATION
  Report Type: 
  Country: None (occurrence: None)
  Receive Date: 20120517
  Receipt Date: 20120410
  Transmission Date: 20120825
  Serious: No
  Sender: FDA-Public Use
  Company Number: US-GLAXOSMITHKLINE-A0973973A

PATIENT
  Age: 60 Year
  Sex: Male
  Weight: 92 kg

DRUGS (7)
  1. CALCIUM [Concomitant]
  2. NORVASC [Concomitant]
  3. ATENOLOL [Concomitant]
  4. VOTRIENT [Suspect]
     Indication: PRODUCT USED FOR UNKNOWN INDICATION
     Dosage: 3TAB PER DAY
     Route: 048
     Dates: start: 20090101
  5. LEVOTHYROXINE SODIUM [Concomitant]
  6. VITAMIN B-12 [Concomitant]
  7. MULTI-VITAMIN [Concomitant]

REACTIONS (3)
  - PALLOR [None]
  - FATIGUE [None]
  - HAIR COLOUR CHANGES [None]
